FAERS Safety Report 12917526 (Version 8)
Quarter: 2017Q2

REPORT INFORMATION
  Report Type: Spontaneous
  Country: US (occurrence: US)
  Receive Date: 20161107
  Receipt Date: 20170522
  Transmission Date: 20170830
  Serious: Yes (Hospitalization, Congenital Anomaly, Other)
  Sender: FDA-Public Use
  Company Number: PHEH2016US028582

PATIENT
  Sex: Female

DRUGS (2)
  1. ZOFRAN [Suspect]
     Active Substance: ONDANSETRON HYDROCHLORIDE
     Indication: FOETAL EXPOSURE DURING PREGNANCY
     Dosage: UNK
     Route: 064
  2. ZOFRAN [Suspect]
     Active Substance: ONDANSETRON HYDROCHLORIDE
     Indication: FOETAL EXPOSURE DURING PREGNANCY
     Dosage: MOTHER^S DOSAGE: 20 MG, FOUR TIMES A DAY (QID)
     Route: 064

REACTIONS (32)
  - Cardiac murmur [Unknown]
  - Respiratory disorder neonatal [Unknown]
  - Otitis media acute [Unknown]
  - Diarrhoea [Unknown]
  - Heart disease congenital [Unknown]
  - Neonatal pneumonia [Unknown]
  - Pyrexia [Unknown]
  - Neonatal tachypnoea [Unknown]
  - Myocarditis [Unknown]
  - Cellulitis [Unknown]
  - Periodontitis [Unknown]
  - Upper respiratory tract infection [Unknown]
  - Atrioventricular block first degree [Unknown]
  - Rhinorrhoea [Unknown]
  - Asthma [Unknown]
  - Atrial septal defect [Unknown]
  - Dyspnoea [Unknown]
  - Foetal exposure during pregnancy [Unknown]
  - Cardiomegaly [Unknown]
  - Jaundice neonatal [Unknown]
  - Wheezing [Unknown]
  - Hand-foot-and-mouth disease [Unknown]
  - Left-to-right cardiac shunt [Unknown]
  - Neonatal respiratory distress syndrome [Unknown]
  - Bronchial hyperreactivity [Unknown]
  - Right ventricular enlargement [Unknown]
  - Injury [Unknown]
  - Urinary tract infection neonatal [Unknown]
  - Type 1 diabetes mellitus [Unknown]
  - Cardiomyopathy [Unknown]
  - Bronchiolitis [Unknown]
  - Dysuria [Unknown]
